FAERS Safety Report 20231899 (Version 1)
Quarter: 2021Q4

REPORT INFORMATION
  Report Type: Report from Study
  Country: HR (occurrence: HR)
  Receive Date: 20211227
  Receipt Date: 20211227
  Transmission Date: 20220303
  Serious: Yes (Hospitalization, Other)
  Sender: FDA-Public Use
  Company Number: HR-NOVARTISPH-NVSC2021HR268024

PATIENT
  Age: 60 Year
  Sex: Female

DRUGS (3)
  1. ALPELISIB [Suspect]
     Active Substance: ALPELISIB
     Indication: Breast cancer
     Dosage: 300 MG, QD
     Route: 065
     Dates: start: 20211007, end: 20211018
  2. ALPELISIB [Suspect]
     Active Substance: ALPELISIB
     Dosage: 300 MG, QD
     Route: 048
     Dates: start: 20211018, end: 20211029
  3. ALPELISIB [Suspect]
     Active Substance: ALPELISIB
     Dosage: 200 MG, QD
     Route: 065

REACTIONS (9)
  - Diabetes mellitus [Recovered/Resolved with Sequelae]
  - Hyperglycaemia [Unknown]
  - Rash [Recovered/Resolved]
  - Urticaria [Unknown]
  - Papule [Unknown]
  - Angioedema [Recovered/Resolved with Sequelae]
  - Stomatitis [Unknown]
  - Swollen tongue [Unknown]
  - Pyrexia [Recovered/Resolved]

NARRATIVE: CASE EVENT DATE: 20211007
